FAERS Safety Report 20053075 (Version 2)
Quarter: 2021Q4

REPORT INFORMATION
  Report Type: Report from Study
  Country: US (occurrence: US)
  Receive Date: 20211110
  Receipt Date: 20211214
  Transmission Date: 20220303
  Serious: Yes (Hospitalization, Other)
  Sender: FDA-Public Use
  Company Number: US-NOVARTISTESTPH-NVSC2021US257154

PATIENT
  Age: 54 Year
  Sex: Female
  Weight: 56.699 kg

DRUGS (9)
  1. LAMPRENE [Suspect]
     Active Substance: CLOFAZIMINE
     Indication: Mycobacterium avium complex immune restoration disease
     Dosage: 50 MG
     Route: 048
     Dates: start: 20181213
  2. LAMPRENE [Suspect]
     Active Substance: CLOFAZIMINE
     Indication: Bronchiectasis
     Dosage: 50 MG, LAST DOSE PRIOR TO AE
     Route: 048
     Dates: start: 20211114
  3. LEVAQUIN [Concomitant]
     Active Substance: LEVOFLOXACIN
     Indication: Product used for unknown indication
     Dosage: 500 MG
     Route: 048
     Dates: start: 20210726, end: 20210804
  4. PREDNISONE [Concomitant]
     Active Substance: PREDNISONE
     Indication: Product used for unknown indication
     Dosage: 20 MG
     Route: 048
     Dates: start: 20210726, end: 20210730
  5. AMIKACIN [Concomitant]
     Active Substance: AMIKACIN
     Indication: Product used for unknown indication
     Dosage: 590 MG
     Route: 055
     Dates: start: 20180310
  6. ETHAMBUTOL [Concomitant]
     Active Substance: ETHAMBUTOL HYDROCHLORIDE
     Indication: Product used for unknown indication
     Dosage: 1200 MG
     Route: 048
     Dates: start: 20180310
  7. FLOMAX [Concomitant]
     Active Substance: TAMSULOSIN HYDROCHLORIDE
     Indication: Product used for unknown indication
     Dosage: 0.4 MG
     Route: 065
     Dates: start: 20211126
  8. ZOFRAN [Concomitant]
     Active Substance: ONDANSETRON HYDROCHLORIDE
     Indication: Product used for unknown indication
     Dosage: 4 MG
     Route: 048
     Dates: start: 20211126, end: 20211201
  9. LEVOFLOXACIN [Concomitant]
     Active Substance: LEVOFLOXACIN
     Indication: Product used for unknown indication
     Dosage: 750 MG
     Route: 048
     Dates: start: 20211126, end: 20211203

REACTIONS (10)
  - Pelvic organ prolapse [Unknown]
  - Stress urinary incontinence [Unknown]
  - Faecaloma [Recovering/Resolving]
  - Urinary retention [Recovering/Resolving]
  - Pneumonia [Recovering/Resolving]
  - Hepatic enzyme increased [Not Recovered/Not Resolved]
  - Pelvic pain [Recovering/Resolving]
  - Nausea [Recovering/Resolving]
  - Abdominal pain [Recovering/Resolving]
  - Pain [Recovering/Resolving]

NARRATIVE: CASE EVENT DATE: 20211028
